FAERS Safety Report 14294728 (Version 1)
Quarter: 2017Q4

REPORT INFORMATION
  Report Type: Spontaneous
  Country: US (occurrence: US)
  Receive Date: 20171218
  Receipt Date: 20171218
  Transmission Date: 20180321
  Serious: No
  Sender: FDA-Public Use
  Company Number: US-LUPIN PHARMACEUTICALS INC.-2017-04247

PATIENT
  Age: 35 Year
  Sex: Female
  Weight: 58.96 kg

DRUGS (1)
  1. LEVONORGESTREL AND EE TABLET USP 0.1MG/0.02MG AND EE TABLET USP .01 MG [Suspect]
     Active Substance: ETHINYL ESTRADIOL\LEVONORGESTREL
     Indication: ORAL CONTRACEPTION
     Dosage: (0.1MG/0.02MG) + (0.01MG), QD
     Route: 048
     Dates: start: 20170601

REACTIONS (1)
  - Urticaria [Not Recovered/Not Resolved]

NARRATIVE: CASE EVENT DATE: 20170607
